FAERS Safety Report 4840424-1 (Version None)
Quarter: 2005Q4

REPORT INFORMATION
  Report Type: 
  Country: None (occurrence: None)
  Receive Date: 20051101
  Receipt Date: 20050725
  Transmission Date: 20060501
  Serious: No
  Sender: FDA-Public Use
  Company Number: MK200507-0283-1

PATIENT
  Age: 70 Year
  Sex: Male

DRUGS (1)
  1. NEUTROSPEC [Suspect]
     Indication: PYREXIA
     Dosage: 20 MCI, ONE TIME, IV
     Route: 042
     Dates: start: 20050725, end: 20050725

REACTIONS (3)
  - ABDOMINAL PAIN [None]
  - DYSPNOEA [None]
  - OXYGEN SATURATION DECREASED [None]
